FAERS Safety Report 6979139-2 (Version None)
Quarter: 2010Q3

REPORT INFORMATION
  Report Type: 
  Country: None (occurrence: None)
  Receive Date: 20100913
  Receipt Date: 20100906
  Transmission Date: 20110219
  Serious: Yes (Hospitalization)
  Sender: FDA-Public Use
  Company Number: PHHO2010DE11919

PATIENT
  Sex: Female
  Weight: 84 kg

DRUGS (2)
  1. AFINITOR [Suspect]
     Indication: BREAST CANCER
     Dosage: 5 MG, QD
     Route: 048
     Dates: start: 20100408, end: 20100630
  2. PACLITAXEL [Suspect]
     Indication: BREAST CANCER
     Dosage: 162 MG WEEKLY
     Route: 042
     Dates: start: 20100418, end: 20100624

REACTIONS (8)
  - COUGH [None]
  - DYSPNOEA [None]
  - FATIGUE [None]
  - LUNG INFILTRATION [None]
  - MALAISE [None]
  - NEUROPATHY PERIPHERAL [None]
  - PNEUMONITIS [None]
  - TRACHEOSTOMY [None]
